FAERS Safety Report 7258388-2 (Version None)
Quarter: 2011Q1

REPORT INFORMATION
  Report Type: 
  Country: None (occurrence: None)
  Receive Date: 20110129
  Receipt Date: 20100709
  Transmission Date: 20110831
  Serious: No
  Sender: FDA-Public Use
  Company Number: US-ABBOTT-10P-163-0656318-00

PATIENT
  Age: 61 Year
  Sex: Female

DRUGS (6)
  1. TRICOR [Concomitant]
     Indication: BLOOD CHOLESTEROL
  2. ARIMIDEX [Concomitant]
     Indication: BREAST CANCER
  3. LEVOTHYROXINE SODIUM [Concomitant]
     Indication: HYPOTHYROIDISM
  4. HUMIRA [Suspect]
     Indication: RHEUMATOID ARTHRITIS
  5. FERROUS SULFATE TAB [Concomitant]
     Indication: MINERAL SUPPLEMENTATION
  6. VITAMIN D [Concomitant]
     Indication: VITAMIN SUPPLEMENTATION

REACTIONS (3)
  - SPUTUM DISCOLOURED [None]
  - INCORRECT STORAGE OF DRUG [None]
  - COUGH [None]
